FAERS Safety Report 10179609 (Version 1)
Quarter: 2014Q2

REPORT INFORMATION
  Report Type: Spontaneous
  Country: US (occurrence: None)
  Receive Date: 20140425
  Receipt Date: 20140425
  Transmission Date: 20141212
  Serious: No
  Sender: FDA-Public Use
  Company Number: AP356-00449-SPO-US

PATIENT
  Age: 67 Year
  Sex: Male
  Weight: 118 kg

DRUGS (5)
  1. BELVIQ (LORCASERIN HYDROCHLORIDE) [Suspect]
     Indication: WEIGHT DECREASED
     Route: 048
     Dates: start: 20140204
  2. LIPITOR (ATORVASTATIN CALCIUM) [Concomitant]
  3. LOSARTAN (LOSARTAN) [Concomitant]
  4. ASPIRIN (ACETYLSALICYLIC ACID) [Concomitant]
  5. ZOLPIDEM (ZOLPIDEM) [Concomitant]

REACTIONS (2)
  - Weight increased [None]
  - Drug ineffective [None]
